FAERS Safety Report 7489090-X (Version None)
Quarter: 2011Q2

REPORT INFORMATION
  Report Type: 
  Country: None (occurrence: None)
  Receive Date: 20110518
  Receipt Date: 20110511
  Transmission Date: 20111010
  Serious: Yes (Hospitalization, Other)
  Sender: FDA-Public Use
  Company Number: FR-KINGPHARMUSA00001-K201100585

PATIENT
  Age: 52 Year
  Sex: Male

DRUGS (5)
  1. METOPROLOL TARTRATE [Suspect]
     Dosage: 25 MG, QD
     Route: 048
  2. OMEPRAZOLE [Suspect]
     Dosage: 20 MG, QD
     Route: 048
  3. ALTACE [Suspect]
     Dosage: 20 MG, QD
     Route: 048
  4. SIMVASTATIN [Suspect]
     Dosage: 20 MG, QD
     Route: 048
  5. CLOPIDOGREL [Suspect]
     Dosage: 75 MG, QD
     Route: 048

REACTIONS (3)
  - ILEUS [None]
  - CONSTIPATION [None]
  - DRUG INTERACTION [None]
